FAERS Safety Report 10602130 (Version 2)
Quarter: 2014Q4

REPORT INFORMATION
  Report Type: Report from Study
  Country: TR (occurrence: TR)
  Receive Date: 20141124
  Receipt Date: 20141124
  Transmission Date: 20150529
  Serious: Yes (Other)
  Sender: FDA-Public Use
  Company Number: TR-BRISTOL-MYERS SQUIBB COMPANY-21584644

PATIENT
  Age: 49 Year
  Sex: Female

DRUGS (3)
  1. ORENCIA [Suspect]
     Active Substance: ABATACEPT
     Dosage: 14OCT2014
     Route: 058
     Dates: start: 20140904
  2. FOLIC ACID. [Concomitant]
     Active Substance: FOLIC ACID
  3. METOCLOPRAMIDE. [Concomitant]
     Active Substance: METOCLOPRAMIDE

REACTIONS (5)
  - Migraine [Recovering/Resolving]
  - Injection site reaction [Not Recovered/Not Resolved]
  - Arthralgia [Unknown]
  - Hypoaesthesia [Recovering/Resolving]
  - Sensory loss [Recovered/Resolved]

NARRATIVE: CASE EVENT DATE: 20141030
